FAERS Safety Report 4733147-0 (Version None)
Quarter: 2005Q3

REPORT INFORMATION
  Report Type: 
  Country: None (occurrence: None)
  Receive Date: 20050801
  Receipt Date: 20050801
  Transmission Date: 20060218
  Serious: Yes (Hospitalization)
  Sender: FDA-Public Use
  Company Number: None

PATIENT
  Age: 60 Year
  Sex: Male

DRUGS (6)
  1. ISOSORBIDE [Suspect]
     Indication: ANGINA PECTORIS
     Dosage: 10 MG TID
     Dates: start: 19950401
  2. FUROSEMIDE [Concomitant]
  3. POTASSIUM CHLORIDE [Concomitant]
  4. CARVEDILOL [Concomitant]
  5. ZOCOR [Concomitant]
  6. FOSINOPRIL SODIUM [Concomitant]

REACTIONS (1)
  - ORTHOSTATIC HYPOTENSION [None]
